FAERS Safety Report 17447833 (Version 2)
Quarter: 2022Q1

REPORT INFORMATION
  Report Type: Spontaneous
  Country: US (occurrence: US)
  Receive Date: 20200221
  Receipt Date: 20220214
  Transmission Date: 20220424
  Serious: No
  Sender: FDA-Public Use
  Company Number: US-NOVARTISTESTPH-NVSC2020US049277

PATIENT

DRUGS (1)
  1. ILARIS [Suspect]
     Active Substance: CANAKINUMAB
     Indication: Hyper IgD syndrome
     Dosage: UNK UNK, OTHER, EVERY 4 WEEKS
     Route: 058

REACTIONS (1)
  - Breakthrough pain [Unknown]
